FAERS Safety Report 23251580 (Version 1)
Quarter: 2023Q4

REPORT INFORMATION
  Report Type: Report from Study
  Country: CN (occurrence: CN)
  Receive Date: 20231201
  Receipt Date: 20231201
  Transmission Date: 20240110
  Serious: Yes (Hospitalization, Other)
  Sender: FDA-Public Use
  Company Number: CN-FOSUNKITE-FOSUNKITE-20231272

PATIENT
  Age: 27 Year
  Sex: Male
  Weight: 84 kg

DRUGS (11)
  1. BREXUCABTAGENE AUTOLEUCEL [Suspect]
     Active Substance: BREXUCABTAGENE AUTOLEUCEL
     Indication: Acute lymphocytic leukaemia
     Dosage: 68 ML, SINGLE
     Route: 041
     Dates: start: 20231023, end: 20231023
  2. FLUDARABINE [Suspect]
     Active Substance: FLUDARABINE PHOSPHATE
     Indication: Bone marrow conditioning regimen
     Dosage: 1900 MG, SINGLE
     Route: 041
     Dates: start: 20231021, end: 20231021
  3. FLUDARABINE [Suspect]
     Active Substance: FLUDARABINE PHOSPHATE
     Dosage: 53 MG, QD
     Route: 041
     Dates: start: 20231019, end: 20231021
  4. CYCLOPHOSPHAMIDE [Suspect]
     Active Substance: CYCLOPHOSPHAMIDE
     Indication: Bone marrow conditioning regimen
     Dosage: 53 MG, QD
     Route: 041
     Dates: start: 20231019, end: 20231021
  5. CYCLOPHOSPHAMIDE [Suspect]
     Active Substance: CYCLOPHOSPHAMIDE
     Dosage: 1900 MG, SINGLE
     Route: 041
     Dates: start: 20231021, end: 20231021
  6. PIPERACILLIN SODIUM\TAZOBACTAM SODIUM [Concomitant]
     Active Substance: PIPERACILLIN SODIUM\TAZOBACTAM SODIUM
     Indication: Infection
     Dosage: UNK
     Dates: start: 20231023
  7. ADENOSINE [Concomitant]
     Active Substance: ADENOSINE
     Dosage: UNK
     Route: 040
     Dates: start: 20231023
  8. OXYGEN [Concomitant]
     Active Substance: OXYGEN
     Indication: Cytokine release syndrome
  9. MEROPENEM [Concomitant]
     Active Substance: MEROPENEM
     Indication: Infection
     Dosage: UNK
     Dates: start: 202310
  10. HUMAN RED BLOOD CELL [Concomitant]
     Active Substance: HUMAN RED BLOOD CELL
     Indication: Haemoglobin decreased
  11. PLATELETS [Concomitant]
     Active Substance: HUMAN PLATELET, ALLOGENIC
     Dosage: IU
     Route: 042
     Dates: start: 20231024, end: 20231115

REACTIONS (2)
  - Myelosuppression [Not Recovered/Not Resolved]
  - Immune effector cell-associated neurotoxicity syndrome [Recovered/Resolved]

NARRATIVE: CASE EVENT DATE: 20231101
